FAERS Safety Report 9979615 (Version 2)
Quarter: 2014Q1

REPORT INFORMATION
  Report Type: Report from Study
  Country: US (occurrence: US)
  Receive Date: 20140306
  Receipt Date: 20140306
  Transmission Date: 20141002
  Serious: No
  Sender: FDA-Public Use
  Company Number: US-ABBVIE-13P-163-1147269-00

PATIENT
  Age: 57 Year
  Sex: Female

DRUGS (4)
  1. HUMIRA [Suspect]
     Indication: CROHN^S DISEASE
     Dosage: FIRST LOADING DOSE
     Dates: start: 20130815, end: 20130815
  2. HUMIRA [Suspect]
     Dosage: FIRST LOADING DOSE
  3. FOSAMAX [Concomitant]
     Indication: BONE DISORDER
  4. LEVOXIL [Concomitant]
     Indication: HYPOTHYROIDISM

REACTIONS (2)
  - Drug ineffective [Not Recovered/Not Resolved]
  - Crohn^s disease [Not Recovered/Not Resolved]
